FAERS Safety Report 7590131-X (Version None)
Quarter: 2011Q3

REPORT INFORMATION
  Report Type: 
  Country: None (occurrence: None)
  Receive Date: 20110705
  Receipt Date: 20110627
  Transmission Date: 20111222
  Serious: Yes (Other)
  Sender: FDA-Public Use
  Company Number: B0730384A

PATIENT
  Age: 44 Year
  Sex: Female

DRUGS (2)
  1. LYRICA [Suspect]
     Dosage: 150MG TWICE PER DAY
     Route: 065
  2. LAMICTAL [Suspect]
     Route: 065

REACTIONS (2)
  - BLINDNESS [None]
  - PAIN [None]
